FAERS Safety Report 15725555 (Version 2)
Quarter: 2019Q1

REPORT INFORMATION
  Report Type: Spontaneous
  Country: ES (occurrence: ES)
  Receive Date: 20181215
  Receipt Date: 20190124
  Transmission Date: 20190417
  Serious: Yes (Hospitalization, Other)
  Sender: FDA-Public Use
  Company Number: ES-ACCORD-096355

PATIENT
  Age: 56 Year
  Sex: Male

DRUGS (3)
  1. OLMESARTAN/OLMESARTAN MEDOXOMIL [Concomitant]
     Indication: HYPERTENSION
     Dosage: 1 TABLET / DAY
     Route: 048
     Dates: start: 201709, end: 20180208
  2. ALLOPURINOL. [Suspect]
     Active Substance: ALLOPURINOL
     Indication: GOUT
     Dosage: UNKNOWN (DOES NOT REMEMBER THE DOSE)
     Route: 048
     Dates: start: 20180118, end: 20180121
  3. ESOMEPRAZOLE. [Concomitant]
     Active Substance: ESOMEPRAZOLE MAGNESIUM
     Indication: ABDOMINAL PAIN UPPER
     Dosage: 1 TABLET / DAY
     Route: 048
     Dates: start: 201709, end: 20180125

REACTIONS (1)
  - Haemophagocytic lymphohistiocytosis [Recovering/Resolving]

NARRATIVE: CASE EVENT DATE: 20180124
